FAERS Safety Report 25914076 (Version 1)
Quarter: 2025Q4

REPORT INFORMATION
  Report Type: Spontaneous
  Country: EU (occurrence: EU)
  Receive Date: 20251013
  Receipt Date: 20251013
  Transmission Date: 20260118
  Serious: Yes (Other)
  Sender: PFIZER
  Company Number: EU-PFIZER INC-202500200865

PATIENT
  Sex: Male

DRUGS (1)
  1. ETRASIMOD [Suspect]
     Active Substance: ETRASIMOD

REACTIONS (2)
  - Choroiditis [Not Recovered/Not Resolved]
  - Hypertensive crisis [Not Recovered/Not Resolved]
